FAERS Safety Report 18396629 (Version 1)
Quarter: 2020Q4

REPORT INFORMATION
  Report Type: Spontaneous
  Country: GR (occurrence: GR)
  Receive Date: 20201019
  Receipt Date: 20201019
  Transmission Date: 20210114
  Serious: Yes (Other)
  Sender: FDA-Public Use
  Company Number: GR-PFIZER INC-2020396218

PATIENT
  Age: 36 Year
  Sex: Male

DRUGS (1)
  1. ZITHROMAX [Suspect]
     Active Substance: AZITHROMYCIN DIHYDRATE
     Indication: BRONCHOSPASM
     Dosage: 500 MG, 1X/DAY

REACTIONS (3)
  - Hypothermia [Unknown]
  - Incorrect product administration duration [Unknown]
  - Off label use [Unknown]
